FAERS Safety Report 9807144 (Version 1)
Quarter: 2014Q1

REPORT INFORMATION
  Report Type: Spontaneous
  Country: US (occurrence: US)
  Receive Date: 20140110
  Receipt Date: 20140110
  Transmission Date: 20141002
  Serious: Yes (Death, Hospitalization, Other)
  Sender: FDA-Public Use
  Company Number: US-ASTRAZENECA-2014SE01194

PATIENT
  Age: 71 Year
  Sex: Male

DRUGS (14)
  1. METOPROLOL XL [Suspect]
     Indication: HYPERTENSION
     Route: 048
     Dates: start: 20110823, end: 20130707
  2. MORPHINE [Suspect]
     Route: 065
  3. PAROXETINE [Suspect]
     Indication: DEPRESSION
     Route: 065
     Dates: start: 20111025, end: 20130707
  4. LORAZEPAM [Suspect]
     Indication: ANXIETY
     Route: 065
     Dates: start: 20130506, end: 20130707
  5. ONDANSETRON HYDROCHLORIDE [Suspect]
     Indication: PROPHYLAXIS OF NAUSEA AND VOMITING
     Route: 065
     Dates: start: 20111025, end: 20130707
  6. OXYCODONE [Suspect]
     Indication: PAIN PROPHYLAXIS
     Route: 065
     Dates: start: 20130530, end: 20130707
  7. VITAMIN B COMPLEX [Suspect]
     Indication: SUPPLEMENTATION THERAPY
     Dosage: AS REQUIRED
     Route: 065
     Dates: start: 20130514, end: 20130707
  8. VITAMIN B 12 [Suspect]
     Indication: SUPPLEMENTATION THERAPY
     Dosage: AS REQUIRED
     Route: 065
     Dates: start: 20111025, end: 20130707
  9. DIPHENOXYLATE W/ATROPINE SULPHATE [Suspect]
     Indication: DIARRHOEA
     Dosage: AS REQUIRED
     Route: 065
     Dates: start: 20111212, end: 20130707
  10. LOVENOX [Suspect]
     Route: 065
  11. VITAMIN D3 [Suspect]
     Route: 065
  12. COLACE [Suspect]
     Indication: CONSTIPATION PROPHYLAXIS
     Route: 065
     Dates: start: 20130514, end: 20130707
  13. BLINDED TAS 102 [Suspect]
     Indication: COLORECTAL CANCER METASTATIC
     Route: 048
     Dates: start: 20130530, end: 20130610
  14. WARFARIN SODIUM [Concomitant]

REACTIONS (6)
  - Haemorrhage intracranial [Fatal]
  - Cardio-respiratory arrest [Fatal]
  - Renal failure [Fatal]
  - Acidosis [Fatal]
  - Arthralgia [Unknown]
  - Pulmonary embolism [Unknown]
